FAERS Safety Report 4441027-3 (Version None)
Quarter: 2004Q3

REPORT INFORMATION
  Report Type: 
  Country: None (occurrence: None)
  Receive Date: 20040902
  Receipt Date: 20040902
  Transmission Date: 20050211
  Serious: Yes (Hospitalization)
  Sender: FDA-Public Use
  Company Number: None

PATIENT
  Age: 74 Year
  Sex: Female

DRUGS (7)
  1. AMOXICILLIN/CLAVLANIC ACID 1000 MG TBL LEK [Suspect]
     Dosage: 2 G Q DAILY ORAL
     Route: 048
     Dates: start: 20040430, end: 20040509
  2. NOVALGIN [Concomitant]
  3. FRAGMIN [Concomitant]
  4. GLYVENOL [Concomitant]
  5. NIT-RET SLOVAKOFARMA [Concomitant]
  6. RANITAL [Concomitant]
  7. ANOPYRIN [Concomitant]

REACTIONS (1)
  - HEPATITIS CHOLESTATIC [None]
